FAERS Safety Report 6111757-6 (Version None)
Quarter: 2009Q1

REPORT INFORMATION
  Report Type: 
  Country: None (occurrence: None)
  Receive Date: 20090311
  Receipt Date: 20080713
  Transmission Date: 20090719
  Serious: No
  Sender: FDA-Public Use
  Company Number: US-TYCO HEALTHCARE/MALLINCKRODT-T200801171

PATIENT

DRUGS (21)
  1. RESTORIL [Suspect]
     Indication: INSOMNIA
     Dosage: 15 MG, UNK
     Dates: start: 20080630, end: 20080630
  2. OMEPRAZOLE [Concomitant]
     Dosage: 20 MG, BID
  3. SENOKOT                            /00142201/ [Concomitant]
     Dosage: 8.6, BID
  4. FLOWMAX [Concomitant]
     Dosage: .4 MG, BID
  5. ALLOPURINOL [Concomitant]
     Dosage: 100 MG, QD
  6. DIMIDEX [Concomitant]
     Dosage: 40 MG, QD
  7. NORVASC [Concomitant]
     Dosage: 10 MG, QD
  8. SPIRONOLACTONE [Concomitant]
     Dosage: 25 MG, BID
  9. BIDIL [Concomitant]
     Dosage: 20/37.5, BID
  10. IRON SULFATETHIAMIN COMPOUND TAB [Concomitant]
     Dosage: 325 MG, BID
  11. COREG [Concomitant]
     Dosage: 25 MG, BID
  12. MAGNESIUM OXIDE [Concomitant]
     Dosage: 400 MG, QD
  13. LIPITOR [Concomitant]
     Dosage: 80 MG, QD
  14. ASPIRIN [Concomitant]
     Dosage: 1, QD
  15. DUONEB [Concomitant]
     Dosage: UNK, QID
  16. K-DUR [Concomitant]
     Dosage: 10 MEQ, QD
  17. NOVOLIN R [Concomitant]
     Dosage: 100U/ML, ON SLIDING SCALE
  18. VITAMIN C                          /00008001/ [Concomitant]
  19. APAP TAB [Concomitant]
     Dosage: 325 MG, PRN
  20. PROPOXYPHENE NAPSYLATE W/ ACETAMINOPHEN [Concomitant]
     Indication: PAIN
     Dosage: 1 Q 6 HRS, PRN
  21. PROPOXYPHENE NAPSYLATE W/ ACETAMINOPHEN [Concomitant]
     Indication: POLYNEUROPATHY

REACTIONS (2)
  - DRUG EFFECT DECREASED [None]
  - HYPERSENSITIVITY [None]
